FAERS Safety Report 6184159-4 (Version None)
Quarter: 2009Q2

REPORT INFORMATION
  Report Type: 
  Country: None (occurrence: None)
  Receive Date: 20090508
  Receipt Date: 20090507
  Transmission Date: 20091009
  Serious: No
  Sender: FDA-Public Use
  Company Number: US-B.I. PHARMACEUTICALS,INC./RIDGEFIELD-2009-BP-05684BP

PATIENT
  Age: 76 Year
  Sex: Male

DRUGS (4)
  1. MICARDIS HCT [Suspect]
     Indication: HYPERTENSION
     Route: 048
     Dates: start: 20080101, end: 20090101
  2. FLOMAX [Concomitant]
     Indication: BENIGN PROSTATIC HYPERPLASIA
  3. AMLODIPINE [Concomitant]
     Indication: BLOOD PRESSURE INCREASED
  4. ATENOLOL [Concomitant]
     Indication: BLOOD PRESSURE INCREASED

REACTIONS (2)
  - BLOOD POTASSIUM DECREASED [None]
  - BLOOD SODIUM DECREASED [None]
